FAERS Safety Report 7163348-6 (Version None)
Quarter: 2010Q4

REPORT INFORMATION
  Report Type: 
  Country: None (occurrence: None)
  Receive Date: 20101201
  Receipt Date: 20101116
  Transmission Date: 20110411
  Serious: Yes (Other)
  Sender: FDA-Public Use
  Company Number: KV201000348

PATIENT
  Age: 5 Year
  Sex: Female

DRUGS (1)
  1. EVAMIST, THER-RX (ESTRADIOL) SPRAY (EXCEPT INHALATION), 1.53MG [Suspect]
     Indication: ACCIDENTAL EXPOSURE

REACTIONS (8)
  - ACCIDENTAL EXPOSURE [None]
  - BLOOD GONADOTROPHIN DECREASED [None]
  - BLOOD PROLACTIN INCREASED [None]
  - BONE DEVELOPMENT ABNORMAL [None]
  - BREAST DISCOLOURATION [None]
  - HAIR GROWTH ABNORMAL [None]
  - PRECOCIOUS PUBERTY [None]
  - UTERINE ENLARGEMENT [None]
